FAERS Safety Report 25427813 (Version 1)
Quarter: 2025Q2

REPORT INFORMATION
  Report Type: Spontaneous
  Country: DE (occurrence: DE)
  Receive Date: 20250612
  Receipt Date: 20250612
  Transmission Date: 20250716
  Serious: Yes (Other)
  Sender: PFIZER
  Company Number: None

PATIENT
  Age: 33 Year
  Sex: Female
  Weight: 56 kg

DRUGS (2)
  1. CYTOTEC [Suspect]
     Active Substance: MISOPROSTOL
     Indication: Labour induction
     Route: 048
     Dates: start: 20170820, end: 20170820
  2. CYTOTEC [Suspect]
     Active Substance: MISOPROSTOL
     Indication: Prolonged pregnancy

REACTIONS (10)
  - Maternal exposure during pregnancy [Unknown]
  - Vulvovaginal injury [Recovered/Resolved with Sequelae]
  - Uterine tachysystole [Recovered/Resolved with Sequelae]
  - Haemorrhage [Recovered/Resolved with Sequelae]
  - Labour pain [Recovered/Resolved with Sequelae]
  - Fear of death [Recovered/Resolved with Sequelae]
  - Panic attack [Recovered/Resolved with Sequelae]
  - Post-traumatic stress disorder [Recovered/Resolved]
  - Mobility decreased [Unknown]
  - Off label use [Unknown]

NARRATIVE: CASE EVENT DATE: 20170820
